FAERS Safety Report 12889576 (Version 1)
Quarter: 2016Q4

REPORT INFORMATION
  Report Type: Spontaneous
  Country: SI (occurrence: SI)
  Receive Date: 20161027
  Receipt Date: 20161027
  Transmission Date: 20170207
  Serious: Yes (Hospitalization)
  Sender: FDA-Public Use
  Company Number: SI-JNJFOC-20161022401

PATIENT
  Age: 78 Year
  Sex: Female
  Weight: 83 kg

DRUGS (8)
  1. SIMPONI [Suspect]
     Active Substance: GOLIMUMAB
     Indication: PRODUCT USED FOR UNKNOWN INDICATION
     Route: 058
     Dates: start: 2016
  2. SIMPONI [Suspect]
     Active Substance: GOLIMUMAB
     Indication: PRODUCT USED FOR UNKNOWN INDICATION
     Route: 058
     Dates: start: 20150619, end: 20151223
  3. ATORIS [Concomitant]
     Active Substance: ATORVASTATIN CALCIUM
     Route: 065
  4. LEFLUNOMID [Concomitant]
     Active Substance: LEFLUNOMIDE
     Route: 065
  5. ASPIRIN PROTECT [Concomitant]
     Active Substance: ASPIRIN
     Route: 065
  6. ACIPAN [Concomitant]
     Active Substance: PANTOPRAZOLE SODIUM
     Route: 065
  7. ZALDIAR [Concomitant]
     Active Substance: ACETAMINOPHEN\TRAMADOL HYDROCHLORIDE
     Route: 065
  8. NAPROXEN SODIUM. [Concomitant]
     Active Substance: NAPROXEN SODIUM
     Route: 065

REACTIONS (1)
  - Cerebrovascular accident [Recovering/Resolving]

NARRATIVE: CASE EVENT DATE: 20160106
